FAERS Safety Report 6334968-3 (Version None)
Quarter: 2009Q3

REPORT INFORMATION
  Report Type: 
  Country: None (occurrence: None)
  Receive Date: 20090831
  Receipt Date: 20090819
  Transmission Date: 20100115
  Serious: Yes (Disabling)
  Sender: FDA-Public Use
  Company Number: PT-PFIZER INC-2009258032

PATIENT

DRUGS (6)
  1. LYRICA [Suspect]
     Indication: MYELOPATHY
     Dosage: 75 MG, UNK
     Route: 048
     Dates: start: 20090429, end: 20090502
  2. ETODOLAC [Concomitant]
     Route: 048
  3. CILAZAPRIL [Concomitant]
     Indication: HYPERTENSION
     Dosage: 5 MG, UNK
  4. NEBIVOLOL HYDROCHLORIDE [Concomitant]
     Indication: CARDIAC FAILURE
     Dosage: 5 MG, UNK
  5. DIGOXIN [Concomitant]
     Indication: CARDIAC FAILURE
     Dosage: 125 MG, UNK
  6. ACETYLSALICYLIC ACID [Concomitant]
     Indication: CEREBROVASCULAR ACCIDENT
     Dosage: 150 MG, UNK

REACTIONS (2)
  - RASH GENERALISED [None]
  - SKIN EXFOLIATION [None]
